FAERS Safety Report 4382501-8 (Version None)
Quarter: 2004Q2

REPORT INFORMATION
  Report Type: 
  Country: None (occurrence: None)
  Receive Date: 20040617
  Receipt Date: 20040608
  Transmission Date: 20050107
  Serious: Yes (Congenital Anomaly)
  Sender: FDA-Public Use
  Company Number: FR-2004-026592

PATIENT
  Sex: Female

DRUGS (1)
  1. MIRENA [Suspect]
     Dosage: 20 UG/DAY, CONT, TRANSPLACENTAL
     Route: 064
     Dates: start: 20030505

REACTIONS (6)
  - BREECH PRESENTATION [None]
  - CAESAREAN SECTION [None]
  - CONGENITAL GENITOURINARY ABNORMALITY [None]
  - DRUG EXPOSURE DURING PREGNANCY [None]
  - NEONATAL DISORDER [None]
  - PREGNANCY WITH CONTRACEPTIVE DEVICE [None]
